FAERS Safety Report 7892145-9 (Version None)
Quarter: 2011Q4

REPORT INFORMATION
  Report Type: 
  Country: None (occurrence: None)
  Receive Date: 20111103
  Receipt Date: 20111027
  Transmission Date: 20120403
  Serious: Yes (Other)
  Sender: FDA-Public Use
  Company Number: US-AMGEN-USASP2011055897

PATIENT
  Sex: Female

DRUGS (1)
  1. ENBREL [Suspect]
     Indication: RHEUMATOID ARTHRITIS
     Dosage: 50 MG, QWK
     Dates: start: 20070301

REACTIONS (4)
  - PARATHYROID DISORDER [None]
  - OSTEOPOROSIS [None]
  - NEPHROLITHIASIS [None]
  - BLOOD CALCIUM INCREASED [None]
